FAERS Safety Report 4553411-8 (Version None)
Quarter: 2005Q1

REPORT INFORMATION
  Report Type: 
  Country: None (occurrence: None)
  Receive Date: 20050112
  Receipt Date: 20041227
  Transmission Date: 20050727
  Serious: Yes (Other)
  Sender: FDA-Public Use
  Company Number: B0363177A

PATIENT
  Age: 24 Year
  Sex: Male

DRUGS (3)
  1. PAXIL [Suspect]
     Dosage: 60 MG PER DAY
     Dates: start: 20030201
  2. SERTRALINE HCL [Concomitant]
  3. OLANZAPINE [Concomitant]

REACTIONS (5)
  - HALLUCINATION, VISUAL [None]
  - HYPNAGOGIC HALLUCINATION [None]
  - NARCOLEPSY [None]
  - SLEEP PARALYSIS [None]
  - SOMNOLENCE [None]
